FAERS Safety Report 4438923-X (Version None)
Quarter: 2004Q3

REPORT INFORMATION
  Report Type: 
  Country: None (occurrence: None)
  Receive Date: 20040830
  Receipt Date: 20040817
  Transmission Date: 20050211
  Serious: No
  Sender: FDA-Public Use
  Company Number: Z002-204-0003

PATIENT
  Sex: 0

DRUGS (1)
  1. ZONISAMIDE/PLACEBO (ZONISAMIDE) [Suspect]
     Indication: PARKINSON'S DISEASE
     Dosage: 4 DOSAGE FORMS, 4 IN 1 D, ORAL
     Route: 048
     Dates: start: 20040624

REACTIONS (2)
  - INJURY ASPHYXIATION [None]
  - PNEUMONIA ASPIRATION [None]
